FAERS Safety Report 9494839 (Version 2)
Quarter: 2013Q3

REPORT INFORMATION
  Report Type: Spontaneous
  Country: US (occurrence: US)
  Receive Date: 20130903
  Receipt Date: 20130903
  Transmission Date: 20140515
  Serious: No
  Sender: FDA-Public Use
  Company Number: US-PFIZER INC-2010026037

PATIENT
  Age: 65 Year
  Sex: Male
  Weight: 81.6 kg

DRUGS (5)
  1. CHANTIX [Suspect]
     Indication: SMOKING CESSATION THERAPY
     Dosage: UNK
     Dates: start: 2006
  2. LIPITOR [Concomitant]
     Dosage: UNK
  3. LORAZEPAM [Concomitant]
     Dosage: UNK
  4. NIASPAN [Concomitant]
     Dosage: UNK
  5. BENICAR [Concomitant]
     Dosage: UNK

REACTIONS (2)
  - Anxiety [Recovered/Resolved]
  - Drug ineffective [Unknown]
